FAERS Safety Report 4340418-9 (Version None)
Quarter: 2004Q2

REPORT INFORMATION
  Report Type: 
  Country: None (occurrence: None)
  Receive Date: 20040414
  Receipt Date: 20040405
  Transmission Date: 20050107
  Serious: Yes (Hospitalization)
  Sender: FDA-Public Use
  Company Number: 2004208102FR

PATIENT
  Sex: Female
  Weight: 3.4 kg

DRUGS (5)
  1. XANAX [Suspect]
     Dosage: 1 MG/DAY, ORAL
     Route: 048
  2. PROZAC [Suspect]
     Dosage: 20 MG/DAY, ORAL
     Route: 048
  3. STILNOX(ZOLPIDEM) [Suspect]
     Dosage: ORAL
     Route: 048
  4. RIVOTRIL [Concomitant]
  5. MYOLASTAN [Concomitant]

REACTIONS (2)
  - BRADYCARDIA NEONATAL [None]
  - DRUG EXPOSURE DURING PREGNANCY [None]
